FAERS Safety Report 13574206 (Version 3)
Quarter: 2017Q3

REPORT INFORMATION
  Report Type: Spontaneous
  Country: KR (occurrence: KR)
  Receive Date: 20170523
  Receipt Date: 20170712
  Transmission Date: 20171127
  Serious: Yes (Hospitalization)
  Sender: FDA-Public Use
  Company Number: KR-009507513-1705KOR010925

PATIENT
  Age: 42 Year
  Sex: Female
  Weight: 54 kg

DRUGS (24)
  1. EMEND (FOSAPREPITANT DIMEGLUMINE) [Suspect]
     Active Substance: FOSAPREPITANT DIMEGLUMINE
     Indication: PROPHYLAXIS OF NAUSEA AND VOMITING
     Dosage: 150 MG, ONCE, CYCLE 1
     Route: 042
     Dates: start: 20160407, end: 20160407
  2. CISPLATIN. [Concomitant]
     Active Substance: CISPLATIN
     Indication: CHEMOTHERAPY
     Dosage: 165 MG, ONCE
     Route: 042
     Dates: start: 20160407, end: 20160407
  3. CHLORPHENESIN CARBAMATE [Concomitant]
     Active Substance: CHLORPHENESIN CARBAMATE
     Indication: PROCEDURAL PAIN
     Dosage: 250 MG, TID
     Route: 048
     Dates: start: 20160412
  4. GANAKHAN [Concomitant]
     Indication: PROPHYLAXIS
     Dosage: 50 MG, TID
     Route: 048
     Dates: start: 20160331, end: 20160426
  5. DEXAMETHASONE SODIUM PHOSPHATE. [Concomitant]
     Active Substance: DEXAMETHASONE SODIUM PHOSPHATE
     Dosage: 8 MG, ONCE
     Route: 042
     Dates: start: 20160408, end: 20160408
  6. DEXAMETHASONE SODIUM PHOSPHATE. [Concomitant]
     Active Substance: DEXAMETHASONE SODIUM PHOSPHATE
     Dosage: 8 MG, BID
     Route: 042
     Dates: start: 20160429, end: 20160501
  7. SOLETON [Concomitant]
     Active Substance: ZALTOPROFEN
     Indication: PROCEDURAL PAIN
     Dosage: 80 MG, TID
     Route: 048
     Dates: start: 20160405
  8. EMEND (FOSAPREPITANT DIMEGLUMINE) [Suspect]
     Active Substance: FOSAPREPITANT DIMEGLUMINE
     Dosage: 150 MG, ONCE, CYCLE 2
     Route: 042
     Dates: start: 20160428, end: 20160428
  9. DEXAMETHASONE SODIUM PHOSPHATE. [Concomitant]
     Active Substance: DEXAMETHASONE SODIUM PHOSPHATE
     Indication: PROPHYLAXIS OF NAUSEA AND VOMITING
     Dosage: 12 MG, ONCE
     Route: 042
     Dates: start: 20160407, end: 20160407
  10. DEXAMETHASONE SODIUM PHOSPHATE. [Concomitant]
     Active Substance: DEXAMETHASONE SODIUM PHOSPHATE
     Dosage: 8 MG, ONCE
     Route: 042
     Dates: start: 20160429, end: 20160429
  11. SANCUSO [Concomitant]
     Active Substance: GRANISETRON
     Indication: PROPHYLAXIS OF NAUSEA AND VOMITING
     Dosage: 1 PATCH DAILY (STRENGTH 80.2X66.6 MM2)
     Route: 062
     Dates: start: 20160406, end: 20160413
  12. LASIX [Concomitant]
     Active Substance: FUROSEMIDE
     Indication: PREMEDICATION
     Dosage: 20 MG, ONCE
     Route: 042
     Dates: start: 20160407, end: 20160407
  13. LASIX [Concomitant]
     Active Substance: FUROSEMIDE
     Dosage: 20 MG, ONCE
     Route: 042
     Dates: start: 20160428, end: 20160428
  14. DEXAMETHASONE SODIUM PHOSPHATE. [Concomitant]
     Active Substance: DEXAMETHASONE SODIUM PHOSPHATE
     Dosage: 12 MG, ONCE
     Route: 042
     Dates: start: 20160428, end: 20160428
  15. SANCUSO [Concomitant]
     Active Substance: GRANISETRON
     Dosage: 1 PATCH DAILY (STRENGTH 80.2X66.6 MM2)
     Route: 062
     Dates: start: 20160427, end: 20160504
  16. DEXILANT [Concomitant]
     Active Substance: DEXLANSOPRAZOLE
     Indication: PROPHYLAXIS AGAINST GASTROINTESTINAL ULCER
     Dosage: 30 MG, QD
     Route: 048
     Dates: start: 20160331
  17. DEXAMETHASONE SODIUM PHOSPHATE. [Concomitant]
     Active Substance: DEXAMETHASONE SODIUM PHOSPHATE
     Dosage: 8 MG, BID
     Route: 042
     Dates: start: 20160409, end: 20160410
  18. MANNITOL. [Concomitant]
     Active Substance: MANNITOL
     Indication: PREMEDICATION
     Dosage: 100 ML, ONCE
     Route: 042
     Dates: start: 20160407, end: 20160407
  19. MACPERAN [Concomitant]
     Active Substance: METOCLOPRAMIDE HYDROCHLORIDE
     Indication: NAUSEA
     Dosage: 10 MG, QD
     Route: 042
     Dates: start: 20160429, end: 20160502
  20. CISPLATIN. [Concomitant]
     Active Substance: CISPLATIN
     Dosage: 159 MG, ONCE
     Route: 042
     Dates: start: 20160428, end: 20160428
  21. NASEA [Concomitant]
     Active Substance: RAMOSETRON HYDROCHLORIDE
     Indication: PROPHYLAXIS OF NAUSEA AND VOMITING
     Dosage: 0.3 MG, QD
     Route: 042
     Dates: start: 20160423, end: 20160425
  22. MANNITOL. [Concomitant]
     Active Substance: MANNITOL
     Dosage: 100 ML, ONCE
     Route: 042
     Dates: start: 20160428, end: 20160428
  23. OMNICEF [Concomitant]
     Active Substance: CEFDINIR
     Indication: INFECTION PROPHYLAXIS
     Dosage: 100 MG, QD
     Route: 048
     Dates: start: 20160425, end: 20160426
  24. FLUMARIN [Concomitant]
     Active Substance: FLOMOXEF SODIUM
     Indication: INFECTION PROPHYLAXIS
     Dosage: 1 G, BID
     Route: 042
     Dates: start: 20160415, end: 20160424

REACTIONS (2)
  - Pyrexia [Recovered/Resolved]
  - Nausea [Recovered/Resolved]

NARRATIVE: CASE EVENT DATE: 20160429
